FAERS Safety Report 9587704 (Version 1)
Quarter: 2013Q4

REPORT INFORMATION
  Report Type: Spontaneous
  Country: PT (occurrence: PT)
  Receive Date: 20131003
  Receipt Date: 20131003
  Transmission Date: 20140711
  Serious: Yes (Disabling)
  Sender: FDA-Public Use
  Company Number: PT-BRISTOL-MYERS SQUIBB COMPANY-19463728

PATIENT
  Age: 36 Year
  Sex: Female
  Weight: 60.4 kg

DRUGS (7)
  1. MITOTANE [Suspect]
     Indication: ADJUVANT THERAPY
  2. HYDROCORTISONE [Concomitant]
  3. FLUOXETINE [Concomitant]
  4. CLONAZEPAM [Concomitant]
  5. AMITRIPTYLINE [Concomitant]
  6. ETHINYLESTRADIOL [Concomitant]
     Dosage: 1 DF: 0.02 NOS
  7. DROSPIRENONE [Concomitant]

REACTIONS (8)
  - Optic neuropathy [Recovering/Resolving]
  - Vertigo [Recovering/Resolving]
  - Asthenia [Recovering/Resolving]
  - Diarrhoea [Recovering/Resolving]
  - Decreased appetite [Recovering/Resolving]
  - Memory impairment [Recovering/Resolving]
  - Depressed level of consciousness [Recovering/Resolving]
  - Paraesthesia [Recovering/Resolving]
